FAERS Safety Report 7783968-5 (Version None)
Quarter: 2011Q3

REPORT INFORMATION
  Report Type: 
  Country: None (occurrence: None)
  Receive Date: 20110928
  Receipt Date: 20110920
  Transmission Date: 20111222
  Serious: Yes (Other)
  Sender: FDA-Public Use
  Company Number: GB-JNJFOC-20110805519

PATIENT
  Sex: Female
  Weight: 77 kg

DRUGS (6)
  1. FOLIC ACID [Concomitant]
     Indication: PRODUCT USED FOR UNKNOWN INDICATION
     Route: 065
  2. TRUVADA [Concomitant]
     Indication: HIV INFECTION
     Route: 048
     Dates: start: 20110821
  3. PREZISTA [Suspect]
     Indication: HIV INFECTION
     Route: 048
     Dates: start: 20100821, end: 20110531
  4. PREZISTA [Suspect]
     Route: 048
     Dates: start: 20110531
  5. RITONAVIR [Concomitant]
     Indication: HIV INFECTION
     Route: 048
     Dates: start: 20110531
  6. RITONAVIR [Concomitant]
     Route: 048
     Dates: start: 20100821, end: 20110531

REACTIONS (3)
  - ANAEMIA [None]
  - ANTIVIRAL DRUG LEVEL BELOW THERAPEUTIC [None]
  - MATERNAL EXPOSURE DURING PREGNANCY [None]
